FAERS Safety Report 4296226-0 (Version None)
Quarter: 2004Q1

REPORT INFORMATION
  Report Type: 
  Country: None (occurrence: None)
  Receive Date: 20040217
  Receipt Date: 20030922
  Transmission Date: 20041129
  Serious: No
  Sender: FDA-Public Use
  Company Number: US-GLAXOSMITHKLINE-A0426899A

PATIENT
  Age: 75 Year
  Sex: Female

DRUGS (5)
  1. LAMICTAL [Suspect]
     Dosage: 25MG PER DAY
     Route: 048
     Dates: start: 20030920, end: 20030920
  2. SYNTHROID [Concomitant]
  3. DILTIAZEM [Concomitant]
  4. ASPIRIN [Concomitant]
  5. CLONAZEPAM [Concomitant]

REACTIONS (4)
  - DIZZINESS [None]
  - HEADACHE [None]
  - NAUSEA [None]
  - SOMNOLENCE [None]
